FAERS Safety Report 25945966 (Version 1)
Quarter: 2025Q4

REPORT INFORMATION
  Report Type: Report from Study
  Country: JP (occurrence: JP)
  Receive Date: 20251021
  Receipt Date: 20251021
  Transmission Date: 20260117
  Serious: Yes (Hospitalization)
  Sender: ABBVIE
  Company Number: JP-ABBVIE-5833236

PATIENT
  Age: 62 Year
  Sex: Male

DRUGS (3)
  1. CARBIDOPA [Suspect]
     Active Substance: CARBIDOPA
     Indication: Parkinson^s disease
     Route: 050
  2. CARBIDOPA [Suspect]
     Active Substance: CARBIDOPA
  3. VYALEV [Suspect]
     Active Substance: FOSCARBIDOPA\FOSLEVODOPA
     Indication: Parkinson^s disease
     Route: 058
     Dates: start: 20240617

REACTIONS (10)
  - Disorientation [Unknown]
  - On and off phenomenon [Unknown]
  - On and off phenomenon [Unknown]
  - Wrong technique in device usage process [Unknown]
  - Infusion site reaction [Unknown]
  - Hallucination, visual [Unknown]
  - Speech disorder [Unknown]
  - Infusion site induration [Unknown]
  - Fall [Recovering/Resolving]
  - Restlessness [Unknown]

NARRATIVE: CASE EVENT DATE: 20240101
